FAERS Safety Report 5716657-9 (Version None)
Quarter: 2008Q2

REPORT INFORMATION
  Report Type: 
  Country: None (occurrence: None)
  Receive Date: 20080424
  Receipt Date: 20070326
  Transmission Date: 20081010
  Serious: Yes (Other)
  Sender: FDA-Public Use
  Company Number: US-BAYER-200419099BWH

PATIENT
  Age: 65 Year
  Sex: Male

DRUGS (3)
  1. LEVITRA [Suspect]
     Indication: ERECTILE DYSFUNCTION
     Dosage: AS USED: 5 MG  UNIT DOSE: 5 MG
     Route: 048
     Dates: start: 20030701, end: 20040610
  2. LEVITRA [Suspect]
     Route: 048
  3. LIPITOR [Concomitant]
     Indication: BLOOD CHOLESTEROL INCREASED
     Dosage: TOTAL DAILY DOSE: 5 MG  UNIT DOSE: 10 MG

REACTIONS (5)
  - ARTHRALGIA [None]
  - BACK PAIN [None]
  - MYOSITIS [None]
  - PAIN IN EXTREMITY [None]
  - SCIATICA [None]
